FAERS Safety Report 5728326-X (Version None)
Quarter: 2008Q2

REPORT INFORMATION
  Report Type: 
  Country: None (occurrence: None)
  Receive Date: 20080506
  Receipt Date: 20080429
  Transmission Date: 20081010
  Serious: Yes (Other)
  Sender: FDA-Public Use
  Company Number: PHEH2008US04175

PATIENT
  Age: 58 Year
  Sex: Female

DRUGS (7)
  1. HUMIRA [Suspect]
     Indication: PSORIATIC ARTHROPATHY
     Dosage: 40MG/0.8ML PRE-FILLED SYRINGE, BIW
     Route: 058
     Dates: start: 20060801
  2. CELECOXIB [Concomitant]
     Dosage: 200 MG, QD
     Route: 048
  3. PREDNISONE [Concomitant]
     Dosage: 10 MG, QD
     Route: 048
  4. METHOTREXATE [Concomitant]
     Dosage: 10 MG, QW
     Route: 048
  5. SOLIFENACIN [Concomitant]
     Dosage: UNK, UNK
     Route: 048
  6. DULOXETINE HYDROCHLORIDE [Concomitant]
     Dosage: 60 MG, QD
     Route: 048
  7. ALISKIREN [Suspect]
     Indication: HYPERTENSION
     Dosage: 150 MG, QD
     Route: 048
     Dates: start: 20070622

REACTIONS (1)
  - INTRAOCULAR PRESSURE INCREASED [None]
